FAERS Safety Report 12318557 (Version 2)
Quarter: 2016Q2

REPORT INFORMATION
  Report Type: Spontaneous
  Country: JP (occurrence: JP)
  Receive Date: 20160429
  Receipt Date: 20160506
  Transmission Date: 20160815
  Serious: No
  Sender: FDA-Public Use
  Company Number: JP-ABBVIE-16P-087-1617197-00

PATIENT
  Age: 75 Year
  Sex: Male

DRUGS (5)
  1. CLARITHROMYCIN TAB [Suspect]
     Active Substance: CLARITHROMYCIN
     Indication: SINUSITIS
  2. CLARITHROMYCIN TAB [Suspect]
     Active Substance: CLARITHROMYCIN
     Indication: BRONCHITIS
     Route: 048
     Dates: start: 20080906, end: 20160206
  3. URIEF [Suspect]
     Active Substance: SILODOSIN
     Indication: BENIGN PROSTATIC HYPERPLASIA
  4. GLIMEPIRIDE. [Suspect]
     Active Substance: GLIMEPIRIDE
     Indication: DIABETES MELLITUS
     Route: 048
     Dates: start: 20160409
  5. URIEF [Suspect]
     Active Substance: SILODOSIN
     Indication: DYSURIA
     Route: 048
     Dates: start: 20160409

REACTIONS (2)
  - Oedema [None]
  - Anaemia [Not Recovered/Not Resolved]
